FAERS Safety Report 8412526-4 (Version None)
Quarter: 2012Q2

REPORT INFORMATION
  Report Type: 
  Country: None (occurrence: None)
  Receive Date: 20120605
  Receipt Date: 20120521
  Transmission Date: 20120825
  Serious: No
  Sender: FDA-Public Use
  Company Number: US-AMGEN-USASP2012031727

PATIENT
  Age: 45 Year
  Sex: Female

DRUGS (6)
  1. PREDNISONE [Concomitant]
     Dosage: UNK
  2. NEXIUM [Concomitant]
     Dosage: UNK
  3. ENBREL [Suspect]
     Indication: RHEUMATOID ARTHRITIS
     Dosage: 50 MG, QWK
     Dates: start: 20120101
  4. IRON [Concomitant]
     Dosage: UNK
  5. POTASSIUM CHLORIDE [Concomitant]
     Dosage: UNK
  6. METOPROLOL TARTRATE [Concomitant]
     Dosage: UNK

REACTIONS (2)
  - INJECTION SITE PRURITUS [None]
  - INJECTION SITE SWELLING [None]
